FAERS Safety Report 11643495 (Version 1)
Quarter: 2015Q4

REPORT INFORMATION
  Report Type: Spontaneous
  Country: US (occurrence: None)
  Receive Date: 20151019
  Receipt Date: 20151019
  Transmission Date: 20160304
  Serious: Yes (Death, Hospitalization)
  Sender: FDA-Public Use
  Company Number: None

PATIENT
  Age: 53 Year
  Sex: Female

DRUGS (7)
  1. LIPITOR [Concomitant]
     Active Substance: ATORVASTATIN CALCIUM
  2. COLACE [Concomitant]
     Active Substance: DOCUSATE SODIUM
  3. ARICEPT [Suspect]
     Active Substance: DONEPEZIL HYDROCHLORIDE
     Indication: DEMENTIA ALZHEIMER^S TYPE
  4. TRAZODONE [Concomitant]
     Active Substance: TRAZODONE HYDROCHLORIDE
  5. MULTIVITAMIN [Concomitant]
     Active Substance: VITAMINS
  6. PROZAC OR ZOLAF NOT SURE WHICH [Concomitant]
  7. OCCASIONAL LAXATIVE [Concomitant]

REACTIONS (5)
  - Dizziness [None]
  - Fall [None]
  - Syncope [None]
  - Injury [None]
  - Withdrawal of life support [None]

NARRATIVE: CASE EVENT DATE: 20070611
